FAERS Safety Report 9479566 (Version 2)
Quarter: 2013Q4

REPORT INFORMATION
  Report Type: Spontaneous
  Country: US (occurrence: US)
  Receive Date: 20130827
  Receipt Date: 20131202
  Transmission Date: 20140711
  Serious: No
  Sender: FDA-Public Use
  Company Number: US-009507513-1308USA009956

PATIENT
  Age: 17 Year
  Sex: Female
  Weight: 77.55 kg

DRUGS (1)
  1. NEXPLANON [Suspect]
     Indication: CONTRACEPTION
     Dosage: 1 ROD
     Route: 059
     Dates: start: 20130805

REACTIONS (2)
  - Device difficult to use [Recovered/Resolved]
  - No adverse event [Unknown]
